FAERS Safety Report 24702059 (Version 2)
Quarter: 2024Q4

REPORT INFORMATION
  Report Type: Report from Study
  Country: CA (occurrence: CA)
  Receive Date: 20241205
  Receipt Date: 20241217
  Transmission Date: 20250115
  Serious: Yes (Other)
  Sender: SANDOZ
  Company Number: CA-SANDOZ-SDZ2023CA045212

PATIENT
  Sex: Female

DRUGS (1)
  1. ERELZI [Suspect]
     Active Substance: ETANERCEPT-SZZS
     Indication: Rheumatoid arthritis
     Dosage: 50 MG, QW
     Route: 058
     Dates: start: 20230803, end: 2024

REACTIONS (13)
  - Monoplegia [Unknown]
  - Pain in extremity [Unknown]
  - General physical health deterioration [Unknown]
  - Sputum discoloured [Unknown]
  - Skin discolouration [Unknown]
  - Malaise [Unknown]
  - Bronchitis [Unknown]
  - Urinary tract infection [Recovering/Resolving]
  - Product communication issue [Unknown]
  - Therapy cessation [Unknown]
  - Product availability issue [Unknown]
  - Product dose omission in error [Unknown]
  - Circumstance or information capable of leading to medication error [Unknown]

NARRATIVE: CASE EVENT DATE: 20240101
